FAERS Safety Report 8596182-0 (Version None)
Quarter: 2012Q3

REPORT INFORMATION
  Report Type: 
  Country: None (occurrence: None)
  Receive Date: 20120815
  Receipt Date: 20120810
  Transmission Date: 20120928
  Serious: Yes (Death, Hospitalization)
  Sender: FDA-Public Use
  Company Number: US-GLAXOSMITHKLINE-A0989089A

PATIENT
  Age: 72 Year
  Sex: Female

DRUGS (10)
  1. HYDROCHLOROTHIAZIDE [Concomitant]
  2. NYSTATIN ORAL SUSPENSION [Concomitant]
  3. BYSTOLIC [Concomitant]
  4. VOTRIENT [Suspect]
     Indication: SARCOMA
     Dosage: 1TAB TWICE PER DAY
     Route: 048
  5. ZETIA [Concomitant]
  6. SYNTHROID [Concomitant]
  7. CARAFATE [Concomitant]
  8. NORVASC [Concomitant]
  9. LEXAPRO [Concomitant]
  10. ATIVAN [Concomitant]

REACTIONS (2)
  - DEATH [None]
  - MALAISE [None]
